FAERS Safety Report 5501903-7 (Version None)
Quarter: 2007Q4

REPORT INFORMATION
  Report Type: 
  Country: None (occurrence: None)
  Receive Date: 20071030
  Receipt Date: 20071019
  Transmission Date: 20080405
  Serious: Yes (Other)
  Sender: FDA-Public Use
  Company Number: GB-ROCHE-527506

PATIENT
  Age: 43 Year
  Sex: Female

DRUGS (1)
  1. ORLISTAT [Suspect]
     Indication: DRUG USE FOR UNKNOWN INDICATION
     Route: 048
     Dates: start: 20060220, end: 20071002

REACTIONS (1)
  - RECTAL HAEMORRHAGE [None]
